FAERS Safety Report 21099906 (Version 1)
Quarter: 2022Q3

REPORT INFORMATION
  Report Type: Spontaneous
  Country: DK (occurrence: DK)
  Receive Date: 20220719
  Receipt Date: 20220719
  Transmission Date: 20221027
  Serious: Yes (Hospitalization, Other)
  Sender: FDA-Public Use
  Company Number: None

PATIENT
  Age: 55 Year
  Sex: Male

DRUGS (2)
  1. CITALOPRAM [Suspect]
     Active Substance: CITALOPRAM HYDROBROMIDE
     Indication: Depression
     Dosage: 40 MILLIGRAM, QD (DOSE WAS REDUCED TO 20MG ONCE DAILY ON 30JUN2022)
     Route: 048
     Dates: start: 2017
  2. METHADONE HYDROCHLORIDE [Suspect]
     Active Substance: METHADONE HYDROCHLORIDE
     Indication: Product used for unknown indication
     Dosage: 60 MILLIGRAM, QD (DOSAGE: 40MG 3 TIMES DAILY UNTIL FEB2022)
     Route: 048
     Dates: start: 2017

REACTIONS (4)
  - Electrocardiogram QT prolonged [Unknown]
  - Chest discomfort [Unknown]
  - Palpitations [Unknown]
  - Drug dependence [Unknown]

NARRATIVE: CASE EVENT DATE: 20220101
